FAERS Safety Report 11390347 (Version 1)
Quarter: 2015Q3

REPORT INFORMATION
  Report Type: Spontaneous
  Country: US (occurrence: None)
  Receive Date: 20150813
  Receipt Date: 20150813
  Transmission Date: 20151125
  Serious: Yes (Hospitalization, Other)
  Sender: FDA-Public Use
  Company Number: PL15-0016031

PATIENT
  Age: 14 Year
  Sex: Male
  Weight: 45 kg

DRUGS (4)
  1. DERMOPLAST PAIN RELIEVING [Suspect]
     Active Substance: BENZOCAINE\MENTHOL
     Indication: ANAESTHESIA
     Dosage: TWICE
     Route: 061
     Dates: start: 20150609, end: 20150609
  2. LETROZOLE. [Concomitant]
     Active Substance: LETROZOLE
  3. NEOSPORIN PLUS PAIN RELIEF NEO TO GO [Suspect]
     Active Substance: BACITRACIN ZINC\NEOMYCIN SULFATE\POLYMYXIN B SULFATE\PRAMOXINE HYDROCHLORIDE
     Indication: ANTIBIOTIC THERAPY
     Dosage: TWICE
     Route: 061
     Dates: start: 20150609, end: 20150609
  4. VITAMIN [Concomitant]
     Active Substance: VITAMINS

REACTIONS (7)
  - Dizziness [None]
  - Vomiting [None]
  - Fall [None]
  - Hypersensitivity [None]
  - Erythema [None]
  - Hypoaesthesia [None]
  - Pruritus [None]

NARRATIVE: CASE EVENT DATE: 20150609
